FAERS Safety Report 13882503 (Version 3)
Quarter: 2021Q2

REPORT INFORMATION
  Report Type: Report from Study
  Country: AR (occurrence: AR)
  Receive Date: 20170818
  Receipt Date: 20210422
  Transmission Date: 20210716
  Serious: Yes (Other)
  Sender: FDA-Public Use
  Company Number: PHHY2017AR121770

PATIENT
  Age: 28 Year
  Sex: Female

DRUGS (3)
  1. ILARIS [Suspect]
     Active Substance: CANAKINUMAB
     Indication: CHRONIC INFANTILE NEUROLOGICAL CUTANEOUS AND ARTICULAR SYNDROME
     Dosage: 150 MG, EVERY 4 WEEKS
     Route: 065
     Dates: start: 201612
  2. ILARIS [Suspect]
     Active Substance: CANAKINUMAB
     Indication: CHRONIC INFANTILE NEUROLOGICAL CUTANEOUS AND ARTICULAR SYNDROME
     Dosage: 150 MG, EVERY 8 WEEKS
     Route: 065
     Dates: start: 20101210, end: 201612
  3. ILARIS [Suspect]
     Active Substance: CANAKINUMAB
     Dosage: 150 MG, QMO
     Route: 058
     Dates: start: 20170421

REACTIONS (4)
  - Intraocular pressure increased [Recovered/Resolved]
  - Glaucoma [Recovered/Resolved]
  - Drug ineffective [Unknown]
  - Product dose omission issue [Unknown]

NARRATIVE: CASE EVENT DATE: 20170601
